FAERS Safety Report 4853858-6 (Version None)
Quarter: 2005Q4

REPORT INFORMATION
  Report Type: 
  Country: None (occurrence: None)
  Receive Date: 20051213
  Receipt Date: 20051128
  Transmission Date: 20060501
  Serious: Yes (Other)
  Sender: FDA-Public Use
  Company Number: US_0502112353

PATIENT
  Age: 47 Year
  Sex: Female
  Weight: 77.3 kg

DRUGS (17)
  1. ZYPREXA [Suspect]
     Indication: DEPRESSION
     Dosage: 5 MG DAILY (1/D) ORAL
     Route: 048
     Dates: start: 20011213, end: 20020801
  2. PROZAC [Suspect]
     Indication: DEPRESSION
     Dosage: 40 MG DAILY (1/D) ORAL
     Route: 048
     Dates: start: 19911201
  3. EVISTA [Concomitant]
  4. RISPERDAL [Concomitant]
  5. CLONIDINE [Concomitant]
  6. VIOXX [Concomitant]
  7. SYNTHROID [Concomitant]
  8. PREVACID [Concomitant]
  9. LEVBID (HYOSCYAMINE SULFATE) [Concomitant]
  10. MULTI-VITAMIN [Concomitant]
  11. CALCIUM (CALCIUM) [Concomitant]
  12. LORTAB [Concomitant]
  13. TERAZOL (TERCONAZOLE) [Concomitant]
  14. ZANTAC [Concomitant]
  15. VITAMIN B12 [Concomitant]
  16. CATAPRES [Concomitant]
  17. ROBINUL (GLYOCOPYRONIUM BROMIDE) [Concomitant]

REACTIONS (26)
  - ABDOMINAL PAIN [None]
  - AFFECT LABILITY [None]
  - ALANINE AMINOTRANSFERASE INCREASED [None]
  - BLOOD TRIGLYCERIDES INCREASED [None]
  - BREAST MICROCALCIFICATION [None]
  - CONDITION AGGRAVATED [None]
  - DEPRESSION [None]
  - DIABETES MELLITUS NON-INSULIN-DEPENDENT [None]
  - FATIGUE [None]
  - GASTROOESOPHAGEAL REFLUX DISEASE [None]
  - GENERAL PHYSICAL CONDITION ABNORMAL [None]
  - HEPATIC STEATOSIS [None]
  - HYPERCHOLESTEROLAEMIA [None]
  - HYPERLIPIDAEMIA [None]
  - HYPERTENSION [None]
  - INCREASED APPETITE [None]
  - IRRITABILITY [None]
  - LIBIDO DECREASED [None]
  - LOW DENSITY LIPOPROTEIN INCREASED [None]
  - NAUSEA [None]
  - NEUROPATHY PERIPHERAL [None]
  - OBESITY [None]
  - OVERGROWTH BACTERIAL [None]
  - STRESS [None]
  - VISION BLURRED [None]
  - WEIGHT INCREASED [None]
